FAERS Safety Report 9456045 (Version 1)
Quarter: 2013Q3

REPORT INFORMATION
  Report Type: Spontaneous
  Country: DE (occurrence: DE)
  Receive Date: 20130813
  Receipt Date: 20130813
  Transmission Date: 20140515
  Serious: Yes (Other)
  Sender: FDA-Public Use
  Company Number: DE-TEVA-423108GER

PATIENT
  Sex: Male

DRUGS (2)
  1. AMITRIPTYLIN-CT 25 MG TABLETTEN [Suspect]
     Indication: DEPRESSION
     Route: 048
     Dates: end: 201307
  2. CITALOPRAM-CT FILMTABLETTEN [Suspect]
     Indication: DEPRESSION
     Route: 048
     Dates: start: 201307

REACTIONS (4)
  - Open angle glaucoma [Not Recovered/Not Resolved]
  - Intraocular pressure increased [Unknown]
  - Visual impairment [Unknown]
  - Visual acuity reduced [Unknown]
